FAERS Safety Report 15702733 (Version 3)
Quarter: 2019Q1

REPORT INFORMATION
  Report Type: Spontaneous
  Country: IL (occurrence: IL)
  Receive Date: 20181210
  Receipt Date: 20190204
  Transmission Date: 20190417
  Serious: Yes (Other)
  Sender: FDA-Public Use
  Company Number: IL-DEXPHARM-20180931

PATIENT
  Age: 79 Year
  Sex: Female
  Weight: 56 kg

DRUGS (3)
  1. FUSID (FUROSEMIDE) [Interacting]
     Active Substance: FUROSEMIDE
  2. MONOCORD [Suspect]
     Active Substance: ISOSORBIDE MONONITRATE
     Indication: HYPERTENSION
  3. ATACAND [Interacting]
     Active Substance: CANDESARTAN CILEXETIL

REACTIONS (4)
  - Orthostatic hypotension [Unknown]
  - Fall [None]
  - Drug interaction [Unknown]
  - Pelvic fracture [Unknown]
